FAERS Safety Report 22528054 (Version 1)
Quarter: 2023Q2

REPORT INFORMATION
  Report Type: Spontaneous
  Country: US (occurrence: US)
  Receive Date: 20230607
  Receipt Date: 20230607
  Transmission Date: 20230721
  Serious: Yes (Other)
  Sender: FDA-Public Use
  Company Number: US-ACERUSPHRM-2023-US-000172

PATIENT
  Age: 63 Year
  Sex: Male

DRUGS (3)
  1. TESTOSTERONE [Suspect]
     Active Substance: TESTOSTERONE
     Indication: Product used for unknown indication
  2. WARFARIN [Concomitant]
     Active Substance: WARFARIN
     Indication: Subclavian artery occlusion
  3. APIXABAN [Concomitant]
     Active Substance: APIXABAN
     Indication: Subclavian artery occlusion

REACTIONS (1)
  - Subclavian artery occlusion [Recovered/Resolved]
